FAERS Safety Report 24594311 (Version 1)
Quarter: 2024Q4

REPORT INFORMATION
  Report Type: Spontaneous
  Country: US (occurrence: None)
  Receive Date: 20241108
  Receipt Date: 20241108
  Transmission Date: 20250115
  Serious: Yes (Hospitalization)
  Sender: Public
  Company Number: None

PATIENT
  Age: 54 Year
  Sex: Male

DRUGS (1)
  1. EVEROLIMUS [Suspect]
     Active Substance: EVEROLIMUS
     Indication: Liver transplant
     Dosage: FREQ: TAKE 2 TABLETS BY MOUTH TWICE DAILY ?
     Route: 048
     Dates: start: 20240713

REACTIONS (1)
  - Renal disorder [None]

NARRATIVE: CASE EVENT DATE: 20241009
